FAERS Safety Report 16909129 (Version 1)
Quarter: 2019Q4

REPORT INFORMATION
  Report Type: Spontaneous
  Country: US (occurrence: US)
  Receive Date: 20191011
  Receipt Date: 20191011
  Transmission Date: 20200122
  Serious: Yes (Other)
  Sender: FDA-Public Use
  Company Number: US-REGENERON PHARMACEUTICALS, INC.-2019-56622

PATIENT

DRUGS (2)
  1. EYLEA [Suspect]
     Active Substance: AFLIBERCEPT
     Dosage: LESS THAN A MONTH
  2. EYLEA [Suspect]
     Active Substance: AFLIBERCEPT
     Indication: PRODUCT USED FOR UNKNOWN INDICATION
     Dosage: UNK, Q8W

REACTIONS (4)
  - Eye disorder [Unknown]
  - Vitrectomy [Unknown]
  - Eye operation [Unknown]
  - Visual impairment [Unknown]

NARRATIVE: CASE EVENT DATE: 2019
